FAERS Safety Report 13805877 (Version 1)
Quarter: 2017Q3

REPORT INFORMATION
  Report Type: Report from Study
  Country: BE (occurrence: BE)
  Receive Date: 20170728
  Receipt Date: 20170728
  Transmission Date: 20171127
  Serious: Yes (Other)
  Sender: FDA-Public Use
  Company Number: BE-SUN PHARMACEUTICAL INDUSTRIES LTD-2017RR-146100

PATIENT
  Sex: Female

DRUGS (6)
  1. ATORVASTATIN [Suspect]
     Active Substance: ATORVASTATIN
     Indication: TYPE IIA HYPERLIPIDAEMIA
     Dosage: 80 MG, DAILY
     Route: 065
     Dates: start: 200710
  2. EZETIMIBE. [Suspect]
     Active Substance: EZETIMIBE
     Dosage: 20 MG, DAILY
     Route: 065
     Dates: start: 200707
  3. EZETIMIBE. [Suspect]
     Active Substance: EZETIMIBE
     Indication: TYPE IIA HYPERLIPIDAEMIA
     Dosage: 20 MG, DAILY
     Route: 065
     Dates: start: 200611
  4. PRAVASTATIN. [Suspect]
     Active Substance: PRAVASTATIN
     Indication: TYPE IIA HYPERLIPIDAEMIA
     Dosage: 40 MG, DAILY
     Route: 065
     Dates: start: 200611
  5. PRAVASTATIN. [Suspect]
     Active Substance: PRAVASTATIN
     Dosage: 80 MG, DAILY
     Route: 065
     Dates: start: 200707
  6. EZETIMIBE. [Suspect]
     Active Substance: EZETIMIBE
     Dosage: 20 MG, DAILY
     Route: 065
     Dates: start: 200710

REACTIONS (1)
  - Drug effect incomplete [Unknown]
